FAERS Safety Report 4295165-9 (Version None)
Quarter: 2004Q1

REPORT INFORMATION
  Report Type: 
  Country: None (occurrence: None)
  Receive Date: 20040211
  Receipt Date: 20031222
  Transmission Date: 20041129
  Serious: Yes (Hospitalization)
  Sender: FDA-Public Use
  Company Number: 7030

PATIENT
  Age: 51 Year
  Sex: Female

DRUGS (4)
  1. METHOTREXATE [Suspect]
     Indication: BREAST CANCER
     Dosage: 60 MG PER_CYCLE, IV
     Route: 042
     Dates: start: 20030929, end: 20030929
  2. FLUOROURACIL [Suspect]
     Indication: BREAST CANCER
     Dosage: 750 MG  IV
     Route: 042
     Dates: start: 20030929, end: 20030929
  3. ONDANSETRON HCL [Concomitant]
  4. TAMOXIFEN CITRATE [Concomitant]

REACTIONS (1)
  - ANAPHYLACTIC SHOCK [None]
